FAERS Safety Report 14582858 (Version 2)
Quarter: 2018Q3

REPORT INFORMATION
  Report Type: Spontaneous
  Country: US (occurrence: US)
  Receive Date: 20180228
  Receipt Date: 20180710
  Transmission Date: 20181010
  Serious: Yes (Other)
  Sender: FDA-Public Use
  Company Number: US-BAYER-2018-039281

PATIENT
  Age: 30 Year
  Sex: Female
  Weight: 85.27 kg

DRUGS (1)
  1. MIRENA [Suspect]
     Active Substance: LEVONORGESTREL
     Indication: CONTRACEPTION
     Dosage: 20 MCG/24HR, CONT
     Route: 015
     Dates: start: 20170830, end: 20180219

REACTIONS (3)
  - Coital bleeding [None]
  - Genital haemorrhage [None]
  - Device dislocation [None]

NARRATIVE: CASE EVENT DATE: 20180219
